FAERS Safety Report 17117400 (Version 1)
Quarter: 2019Q4

REPORT INFORMATION
  Report Type: Spontaneous
  Country: FR (occurrence: FR)
  Receive Date: 20191205
  Receipt Date: 20191205
  Transmission Date: 20200122
  Serious: Yes (Disabling, Other)
  Sender: FDA-Public Use
  Company Number: FR-MYLANLABS-2019M1119000

PATIENT
  Age: 19 Year
  Sex: Male

DRUGS (16)
  1. DOXYCYCLINE. [Suspect]
     Active Substance: DOXYCYCLINE
     Indication: ACNE
     Dosage: UNK
     Route: 065
  2. ADALIMUMAB [Concomitant]
     Active Substance: ADALIMUMAB
     Indication: HIDRADENITIS
  3. ZINC. [Suspect]
     Active Substance: ZINC
     Indication: HIDRADENITIS
  4. TETRACYCLINE [Concomitant]
     Active Substance: TETRACYCLINE
     Indication: ACNE FULMINANS
  5. ISOTRETINOIN. [Suspect]
     Active Substance: ISOTRETINOIN
     Indication: ACNE FULMINANS
     Dosage: UNK
     Route: 065
  6. ISOTRETINOIN. [Suspect]
     Active Substance: ISOTRETINOIN
     Indication: ACNE
  7. TETRACYCLINE [Concomitant]
     Active Substance: TETRACYCLINE
     Indication: HIDRADENITIS
     Dosage: UNK
     Route: 065
  8. RIFAMPICIN [Concomitant]
     Active Substance: RIFAMPIN
     Indication: ACNE FULMINANS
     Dosage: UNK
     Route: 065
  9. INFLIXIMAB [Concomitant]
     Active Substance: INFLIXIMAB
     Indication: ACNE FULMINANS
  10. ADALIMUMAB [Concomitant]
     Active Substance: ADALIMUMAB
     Indication: ACNE FULMINANS
     Dosage: UNK
     Route: 065
  11. ISOTRETINOIN. [Suspect]
     Active Substance: ISOTRETINOIN
     Indication: HIDRADENITIS
  12. CLINDAMYCIN. [Concomitant]
     Active Substance: CLINDAMYCIN
     Indication: ACNE FULMINANS
  13. ZINC. [Suspect]
     Active Substance: ZINC
     Indication: ACNE FULMINANS
     Dosage: UNK
     Route: 065
  14. INFLIXIMAB [Concomitant]
     Active Substance: INFLIXIMAB
     Indication: HIDRADENITIS
     Dosage: UNK
     Route: 065
  15. CLINDAMYCIN. [Concomitant]
     Active Substance: CLINDAMYCIN
     Indication: HIDRADENITIS
     Dosage: UNK
     Route: 065
  16. RIFAMPICIN [Concomitant]
     Active Substance: RIFAMPIN
     Indication: HIDRADENITIS

REACTIONS (5)
  - Drug ineffective [Recovered/Resolved]
  - Acne fulminans [Recovered/Resolved]
  - Condition aggravated [Recovered/Resolved]
  - Product use in unapproved indication [Recovered/Resolved]
  - Hidradenitis [Recovered/Resolved]
